FAERS Safety Report 14812224 (Version 3)
Quarter: 2018Q2

REPORT INFORMATION
  Report Type: Report from Study
  Country: US (occurrence: US)
  Receive Date: 20180425
  Receipt Date: 20180629
  Transmission Date: 20180711
  Serious: Yes (Other)
  Sender: FDA-Public Use
  Company Number: US-AMGEN-USASL2018042856

PATIENT
  Age: 69 Year
  Sex: Female

DRUGS (2)
  1. REPATHA [Suspect]
     Active Substance: EVOLOCUMAB
     Indication: BLOOD CHOLESTEROL INCREASED
     Dosage: 420 MG, QMO
     Route: 065
     Dates: start: 20180316
  2. REPATHA [Suspect]
     Active Substance: EVOLOCUMAB
     Indication: BLOOD CHOLESTEROL ABNORMAL

REACTIONS (29)
  - Nasal congestion [Recovering/Resolving]
  - Pruritus generalised [Recovering/Resolving]
  - Hypoaesthesia [Recovering/Resolving]
  - Myalgia [Recovering/Resolving]
  - Urinary tract infection [Recovering/Resolving]
  - Cardiac flutter [Recovering/Resolving]
  - Cognitive disorder [Recovering/Resolving]
  - Oropharyngeal pain [Recovering/Resolving]
  - Gastrointestinal pain [Recovering/Resolving]
  - Hunger [Recovering/Resolving]
  - Pain [Recovering/Resolving]
  - Migraine [Recovering/Resolving]
  - Tinnitus [Recovering/Resolving]
  - Asthenia [Recovering/Resolving]
  - Abdominal pain upper [Recovering/Resolving]
  - Back pain [Recovering/Resolving]
  - Musculoskeletal chest pain [Recovering/Resolving]
  - Rhinorrhoea [Recovering/Resolving]
  - Confusional state [Recovering/Resolving]
  - Dysuria [Recovering/Resolving]
  - Toothache [Recovering/Resolving]
  - Eye degenerative disorder [Not Recovered/Not Resolved]
  - Chromaturia [Recovering/Resolving]
  - Fatigue [Recovering/Resolving]
  - Nausea [Recovering/Resolving]
  - Pain in extremity [Recovering/Resolving]
  - Feeling abnormal [Recovering/Resolving]
  - Nightmare [Recovering/Resolving]
  - Fear of injection [Unknown]

NARRATIVE: CASE EVENT DATE: 2018
